FAERS Safety Report 17473787 (Version 1)
Quarter: 2020Q1

REPORT INFORMATION
  Report Type: Spontaneous
  Country: US (occurrence: US)
  Receive Date: 20200228
  Receipt Date: 20200228
  Transmission Date: 20200409
  Serious: Yes (Other)
  Sender: FDA-Public Use
  Company Number: US-MYLANLABS-2020M1020973

PATIENT
  Age: 51 Year
  Sex: Male

DRUGS (1)
  1. PANTOPRAZOLE [Suspect]
     Active Substance: PANTOPRAZOLE
     Indication: DIABETIC GASTROPARESIS
     Dosage: UNK
     Route: 065

REACTIONS (3)
  - Iron deficiency anaemia [Unknown]
  - Off label use [Unknown]
  - Enteritis [Recovered/Resolved]
